FAERS Safety Report 10574125 (Version 1)
Quarter: 2014Q4

REPORT INFORMATION
  Report Type: Spontaneous
  Country: FR (occurrence: FR)
  Receive Date: 20141110
  Receipt Date: 20141110
  Transmission Date: 20150529
  Serious: Yes (Other)
  Sender: FDA-Public Use
  Company Number: FR-ELI_LILLY_AND_COMPANY-FR201410011085

PATIENT
  Age: 71 Year
  Sex: Female

DRUGS (1)
  1. GEMZAR [Suspect]
     Active Substance: GEMCITABINE HYDROCHLORIDE
     Indication: PANCREATIC CARCINOMA METASTATIC
     Dosage: 1040 MG, UNKNOWN
     Route: 042
     Dates: start: 20140505, end: 20140826

REACTIONS (1)
  - Erysipeloid [Not Recovered/Not Resolved]

NARRATIVE: CASE EVENT DATE: 20140821
